FAERS Safety Report 11203102 (Version 2)
Quarter: 2015Q2

REPORT INFORMATION
  Report Type: Spontaneous
  Country: US (occurrence: US)
  Receive Date: 20150619
  Receipt Date: 20150626
  Transmission Date: 20150821
  Serious: Yes (Death, Hospitalization)
  Sender: FDA-Public Use
  Company Number: US-JNJFOC-20150614908

PATIENT
  Age: 56 Year
  Sex: Male

DRUGS (2)
  1. IMBRUVICA [Suspect]
     Active Substance: IBRUTINIB
     Indication: CHRONIC LYMPHOCYTIC LEUKAEMIA
     Route: 048
     Dates: start: 20150213, end: 20150522
  2. TRAMADOL [Concomitant]
     Active Substance: TRAMADOL

REACTIONS (2)
  - Tumour lysis syndrome [Unknown]
  - Death [Fatal]

NARRATIVE: CASE EVENT DATE: 20150522
